FAERS Safety Report 19396179 (Version 2)
Quarter: 2021Q2

REPORT INFORMATION
  Report Type: Spontaneous
  Country: FR (occurrence: FR)
  Receive Date: 20210610
  Receipt Date: 20210625
  Transmission Date: 20210717
  Serious: Yes (Death)
  Sender: FDA-Public Use
  Company Number: FR-AUROBINDO-AUR-APL-2021-023570

PATIENT
  Age: 97 Year
  Sex: Female
  Weight: 57 kg

DRUGS (1)
  1. CLOZAPINE ARROW 25 MG SCORED TABLETS [Suspect]
     Active Substance: CLOZAPINE
     Indication: PRODUCT USED FOR UNKNOWN INDICATION
     Dosage: 50 MILLIGRAM
     Route: 048
     Dates: start: 20210208

REACTIONS (2)
  - Neurological decompensation [Fatal]
  - Product administration error [Fatal]

NARRATIVE: CASE EVENT DATE: 20210208
